FAERS Safety Report 10514923 (Version 1)
Quarter: 2014Q4

REPORT INFORMATION
  Report Type: Report from Study
  Country: PE (occurrence: PE)
  Receive Date: 20141013
  Receipt Date: 20141013
  Transmission Date: 20150528
  Serious: Yes (Disabling)
  Sender: FDA-Public Use
  Company Number: PE-ROCHE-1472715

PATIENT
  Age: 54 Year
  Sex: Female

DRUGS (1)
  1. ACTEMRA [Suspect]
     Active Substance: TOCILIZUMAB
     Indication: RHEUMATOID ARTHRITIS
     Route: 042
     Dates: start: 20121016, end: 20140902

REACTIONS (5)
  - Eye disorder [Not Recovered/Not Resolved]
  - Headache [Not Recovered/Not Resolved]
  - Dry eye [Not Recovered/Not Resolved]
  - Hypertension [Not Recovered/Not Resolved]
  - Blindness [Not Recovered/Not Resolved]

NARRATIVE: CASE EVENT DATE: 20141009
